FAERS Safety Report 25539627 (Version 1)
Quarter: 2025Q3

REPORT INFORMATION
  Report Type: Spontaneous
  Country: US (occurrence: US)
  Receive Date: 20250710
  Receipt Date: 20250710
  Transmission Date: 20251020
  Serious: No
  Sender: NOVARTIS
  Company Number: US-002147023-NVSC2025US106587

PATIENT
  Age: 79 Year
  Sex: Male
  Weight: 82.98 kg

DRUGS (8)
  1. ENTRESTO [Suspect]
     Active Substance: SACUBITRIL\VALSARTAN
     Indication: Product used for unknown indication
     Route: 065
  2. BRUKINSA [Suspect]
     Active Substance: ZANUBRUTINIB
     Indication: Chronic lymphocytic leukaemia
     Dosage: 160 MG, BID
     Route: 048
     Dates: start: 20221222
  3. BRUKINSA [Suspect]
     Active Substance: ZANUBRUTINIB
     Dosage: 160 MG, QD
     Route: 048
     Dates: start: 20221222
  4. BRUKINSA [Suspect]
     Active Substance: ZANUBRUTINIB
     Dosage: 160 MG, QD
     Route: 048
     Dates: start: 20221222
  5. BRUKINSA [Suspect]
     Active Substance: ZANUBRUTINIB
     Dosage: 160 MG, QD
     Route: 048
     Dates: start: 20221222
  6. BRUKINSA [Suspect]
     Active Substance: ZANUBRUTINIB
     Dosage: 160 MG, QD
     Route: 048
     Dates: start: 20221222
  7. BRUKINSA [Suspect]
     Active Substance: ZANUBRUTINIB
     Dosage: 160 MG, QD
     Route: 048
     Dates: start: 20221222
  8. BRUKINSA [Suspect]
     Active Substance: ZANUBRUTINIB
     Dosage: 160 MG, QD
     Route: 048
     Dates: start: 20221222

REACTIONS (8)
  - Upper respiratory tract infection [Recovered/Resolved]
  - Gait disturbance [Unknown]
  - Rhinorrhoea [Unknown]
  - Contusion [Unknown]
  - Respiratory syncytial virus infection [Unknown]
  - Cough [Unknown]
  - Pruritus [Unknown]
  - Bronchitis [Unknown]
